FAERS Safety Report 21232485 (Version 4)
Quarter: 2022Q3

REPORT INFORMATION
  Report Type: Other
  Country: US (occurrence: None)
  Receive Date: 20220819
  Receipt Date: 20220829
  Transmission Date: 20221027
  Serious: Yes (Other)
  Sender: FDA-Public Use
  Company Number: US-ROCHE-3163203

PATIENT
  Age: 62 Year
  Sex: Female
  Weight: 85.352 kg

DRUGS (5)
  1. OCREVUS [Suspect]
     Active Substance: OCRELIZUMAB
     Indication: Relapsing multiple sclerosis
     Dosage: 600 MG EVERY 6 MONTH,
     Route: 042
     Dates: start: 20190201
  2. LEVOTHYROXINE [Concomitant]
     Active Substance: LEVOTHYROXINE
  3. DALFAMPRIDINE [Concomitant]
     Active Substance: DALFAMPRIDINE
  4. ALENDRONATE [Concomitant]
     Active Substance: ALENDRONATE SODIUM
  5. LATANOPROST [Concomitant]
     Active Substance: LATANOPROST

REACTIONS (2)
  - COVID-19 [Unknown]
  - Foot fracture [Unknown]

NARRATIVE: CASE EVENT DATE: 20220811
